FAERS Safety Report 24982435 (Version 1)
Quarter: 2025Q1

REPORT INFORMATION
  Report Type: Spontaneous
  Country: BR (occurrence: BR)
  Receive Date: 20250218
  Receipt Date: 20250218
  Transmission Date: 20250409
  Serious: Yes (Other)
  Sender: OTSUKA
  Company Number: BR-LUNDBECK-DKLU4010566

PATIENT

DRUGS (2)
  1. BREXPIPRAZOLE [Suspect]
     Active Substance: BREXPIPRAZOLE
     Indication: Delirium
     Route: 065
  2. BREXPIPRAZOLE [Suspect]
     Active Substance: BREXPIPRAZOLE
     Indication: Hallucination

REACTIONS (2)
  - Parkinson^s disease [Unknown]
  - Product use in unapproved indication [Unknown]
